FAERS Safety Report 13527627 (Version 1)
Quarter: 2017Q2

REPORT INFORMATION
  Report Type: Spontaneous
  Country: ES (occurrence: ES)
  Receive Date: 20170509
  Receipt Date: 20170509
  Transmission Date: 20170830
  Serious: Yes (Other)
  Sender: FDA-Public Use
  Company Number: ES-MYLANLABS-2017M1027336

PATIENT

DRUGS (2)
  1. ADENOSINE. [Suspect]
     Active Substance: ADENOSINE
     Dosage: LOWER-DOSE INJECTION OF 60MICROG. LATER, RECEIVED BOLUSES (UP TO240MICROG)
     Route: 022
  2. ADENOSINE. [Suspect]
     Active Substance: ADENOSINE
     Indication: PRODUCT USED FOR UNKNOWN INDICATION
     Dosage: 120 MICROG; LATER, RECEIVED LOWER-DOSE INJECTION OF 60MICROG
     Route: 022

REACTIONS (2)
  - Presyncope [Recovered/Resolved]
  - Ventricular tachycardia [Recovered/Resolved]
